FAERS Safety Report 13207717 (Version 1)
Quarter: 2017Q1

REPORT INFORMATION
  Report Type: Spontaneous
  Country: US (occurrence: US)
  Receive Date: 20170208
  Receipt Date: 20170208
  Transmission Date: 20170428
  Serious: No
  Sender: FDA-Public Use
  Company Number: US-AMGEN-USASP2016150443

PATIENT

DRUGS (4)
  1. HERCEPTIN [Concomitant]
     Active Substance: TRASTUZUMAB
     Dosage: UNK, Q3WK
     Route: 065
     Dates: start: 201610
  2. PERJETA [Concomitant]
     Active Substance: PERTUZUMAB
     Dosage: UNK, Q3WK
     Route: 065
     Dates: start: 201610
  3. NEULASTA [Suspect]
     Active Substance: PEGFILGRASTIM
     Indication: PRODUCT USED FOR UNKNOWN INDICATION
     Dosage: UNK
     Route: 065
  4. TAXOTERE [Concomitant]
     Active Substance: DOCETAXEL
     Dosage: UNK, Q3WK
     Route: 065
     Dates: start: 201610

REACTIONS (4)
  - Oral discomfort [Unknown]
  - Bone pain [Unknown]
  - Alopecia [Recovering/Resolving]
  - Dysgeusia [Unknown]

NARRATIVE: CASE EVENT DATE: 20161022
